FAERS Safety Report 14666432 (Version 1)
Quarter: 2018Q1

REPORT INFORMATION
  Report Type: Spontaneous
  Country: US (occurrence: US)
  Receive Date: 20180320
  Receipt Date: 20180320
  Transmission Date: 20180509
  Serious: Yes (Death)
  Sender: FDA-Public Use
  Company Number: None

PATIENT
  Age: 57 Year
  Sex: Female

DRUGS (16)
  1. OPSUMIT [Concomitant]
     Active Substance: MACITENTAN
  2. ALLOPURINOL. [Concomitant]
     Active Substance: ALLOPURINOL
  3. DIAZEPAM. [Concomitant]
     Active Substance: DIAZEPAM
  4. WARFARIN [Concomitant]
     Active Substance: WARFARIN
  5. ANORO ELLIPTA [Concomitant]
     Active Substance: UMECLIDINIUM BROMIDE\VILANTEROL TRIFENATATE
  6. PANTOPRAZOLE [Concomitant]
     Active Substance: PANTOPRAZOLE
  7. ATORVASTATIN [Concomitant]
     Active Substance: ATORVASTATIN
  8. DIGOX [Concomitant]
     Active Substance: DIGOXIN
  9. LOSARTAN POT [Concomitant]
     Active Substance: LOSARTAN POTASSIUM
  10. SILDENAFIL 20MG TABS [Suspect]
     Active Substance: SILDENAFIL
     Indication: PULMONARY ARTERIAL HYPERTENSION
     Route: 048
     Dates: start: 20180116
  11. JANUVIA [Concomitant]
     Active Substance: SITAGLIPTIN PHOSPHATE
  12. SYNTHROID [Concomitant]
     Active Substance: LEVOTHYROXINE SODIUM
  13. LISINOPRIL. [Concomitant]
     Active Substance: LISINOPRIL
  14. SPIRONOLACTONE. [Concomitant]
     Active Substance: SPIRONOLACTONE
  15. BACLOFEN. [Concomitant]
     Active Substance: BACLOFEN
  16. VENTOLIN [Concomitant]
     Active Substance: ALBUTEROL SULFATE

REACTIONS (1)
  - Death [None]
